FAERS Safety Report 5392740-5 (Version None)
Quarter: 2007Q3

REPORT INFORMATION
  Report Type: 
  Country: None (occurrence: None)
  Receive Date: 20070720
  Receipt Date: 20070713
  Transmission Date: 20080115
  Serious: Yes (Hospitalization)
  Sender: FDA-Public Use
  Company Number: JP-PFIZER INC-2007003162

PATIENT
  Age: 55 Year
  Sex: Male

DRUGS (14)
  1. VIRACEPT [Suspect]
     Indication: HIV INFECTION
     Dosage: DAILY DOSE:2500MG
     Route: 048
  2. STOCRIN [Suspect]
     Indication: HIV INFECTION
     Dosage: DAILY DOSE:600MG
     Route: 048
     Dates: start: 20010323, end: 20050714
  3. ZIAGEN [Suspect]
     Indication: HIV INFECTION
     Dosage: DAILY DOSE:600MG
     Route: 048
     Dates: start: 20010406, end: 20030408
  4. KALETRA [Suspect]
     Indication: HIV INFECTION
     Dosage: TEXT:6 DOSAGE FORM
     Route: 048
     Dates: start: 20020513, end: 20030409
  5. VIREAD [Suspect]
     Dosage: DAILY DOSE:300MG
     Route: 048
  6. AMYLASE [Concomitant]
     Dates: start: 20010314, end: 20040808
  7. LAC B [Concomitant]
     Dates: start: 20010228, end: 20020310
  8. BAKTAR [Concomitant]
     Dates: start: 20010202, end: 20030708
  9. BAKTAR [Concomitant]
     Dates: start: 20040708, end: 20041018
  10. EPIVIR [Concomitant]
     Dates: start: 20010208, end: 20030408
  11. ALOTEC [Concomitant]
  12. ASPIRIN [Concomitant]
  13. MEXITIL [Concomitant]
     Dates: start: 20040906
  14. SULFAMETHOXAZOLE W/TRIMETHOPRIM [Concomitant]
     Dates: start: 20040708, end: 20040718

REACTIONS (11)
  - BRADYCARDIA [None]
  - CHEST DISCOMFORT [None]
  - DIARRHOEA [None]
  - DIZZINESS [None]
  - HEADACHE [None]
  - MALAISE [None]
  - NAUSEA [None]
  - PALPITATIONS [None]
  - SICK SINUS SYNDROME [None]
  - VENTRICULAR EXTRASYSTOLES [None]
  - VOMITING [None]
